FAERS Safety Report 5171482-5 (Version None)
Quarter: 2006Q4

REPORT INFORMATION
  Report Type: 
  Country: None (occurrence: None)
  Receive Date: 20061205
  Receipt Date: 20061129
  Transmission Date: 20070319
  Serious: Yes (Death)
  Sender: FDA-Public Use
  Company Number: 163-21880-06111285

PATIENT
  Age: 86 Year
  Sex: Female

DRUGS (1)
  1. REVLIMID [Suspect]
     Indication: MALIGNANT PERITONEAL NEOPLASM
     Dosage: 20 MG, QD, ORAL
     Route: 048
     Dates: start: 20061010

REACTIONS (1)
  - NEOPLASM MALIGNANT [None]
